FAERS Safety Report 15460581 (Version 4)
Quarter: 2018Q4

REPORT INFORMATION
  Report Type: Report from Study
  Country: CO (occurrence: CO)
  Receive Date: 20181003
  Receipt Date: 20181018
  Transmission Date: 20190204
  Serious: Yes (Other)
  Sender: FDA-Public Use
  Company Number: PHHY2018CO112342

PATIENT
  Age: 60 Year
  Sex: Male
  Weight: 71 kg

DRUGS (7)
  1. ENTRESTO [Suspect]
     Active Substance: SACUBITRIL\VALSARTAN
     Dosage: 100 MG, QD
     Route: 048
  2. CARVEDILOL. [Suspect]
     Active Substance: CARVEDILOL
     Indication: CARDIAC FAILURE
     Dosage: 25 MG, Q12H
     Route: 048
     Dates: start: 2013
  3. WARFARIN [Concomitant]
     Active Substance: WARFARIN
     Indication: COAGULOPATHY
     Dosage: 5 MG, Q24H
     Route: 048
     Dates: start: 2013
  4. AMIODARONE [Concomitant]
     Active Substance: AMIODARONE
     Indication: CARDIAC FAILURE
     Dosage: 200 MG, UNK (ONCE EVERY 3 DAYS)
     Route: 048
     Dates: start: 2013
  5. ACENOL [Concomitant]
     Indication: CARDIAC FAILURE
     Dosage: UNK UNK, Q24H
     Route: 048
     Dates: start: 2013
  6. ATORVASTATIN [Suspect]
     Active Substance: ATORVASTATIN
     Indication: CARDIAC FAILURE
     Dosage: 40 MG, Q24H
     Route: 048
     Dates: start: 2013
  7. ENTRESTO [Suspect]
     Active Substance: SACUBITRIL\VALSARTAN
     Indication: CARDIAC FAILURE
     Dosage: 50 MG, Q12H
     Route: 048
     Dates: start: 20180302

REACTIONS (10)
  - Loss of consciousness [Unknown]
  - Cough [Unknown]
  - Chest pain [Unknown]
  - Pneumonia [Recovered/Resolved]
  - Contusion [Unknown]
  - Product prescribing error [Unknown]
  - Malaise [Unknown]
  - Productive cough [Unknown]
  - Influenza [Unknown]
  - Ill-defined disorder [Unknown]

NARRATIVE: CASE EVENT DATE: 201809
